FAERS Safety Report 7709127-X (Version None)
Quarter: 2011Q3

REPORT INFORMATION
  Report Type: 
  Country: None (occurrence: None)
  Receive Date: 20110825
  Receipt Date: 20110815
  Transmission Date: 20111222
  Serious: Yes (Hospitalization, Other)
  Sender: FDA-Public Use
  Company Number: PHHY2011BR31277

PATIENT
  Sex: Male

DRUGS (2)
  1. EXELON [Suspect]
     Dosage: UNK UKN, UNK
     Route: 048
     Dates: start: 20040101
  2. EXELON [Suspect]
     Indication: DEMENTIA ALZHEIMER'S TYPE
     Dosage: 3 ML, DAILY
     Route: 048

REACTIONS (8)
  - INCORRECT DOSE ADMINISTERED [None]
  - CONVULSION [None]
  - BONE LESION [None]
  - DEPRESSION [None]
  - INSOMNIA [None]
  - PANCREATITIS [None]
  - DYSGEUSIA [None]
  - BLOOD AMYLASE INCREASED [None]
